FAERS Safety Report 5289070-9 (Version None)
Quarter: 2007Q1

REPORT INFORMATION
  Report Type: 
  Country: None (occurrence: None)
  Receive Date: 20070116
  Receipt Date: 20051208
  Transmission Date: 20070707
  Serious: No
  Sender: FDA-Public Use
  Company Number: FEI2005-2937

PATIENT
  Age: 41 Year
  Sex: Female

DRUGS (3)
  1. INTRAUTERINE COPPER CONTRACEPTIVE [Suspect]
     Indication: CONTRACEPTION
     Dosage: SEE IMAGE
     Route: 015
     Dates: start: 20050510, end: 20050101
  2. INTRAUTERINE COPPER CONTRACEPTIVE [Suspect]
     Indication: CONTRACEPTION
     Dosage: SEE IMAGE
     Route: 015
     Dates: start: 20051109
  3. PAXIL (PAROXETINE HYDROCHLORIDE) (UNKNOWN) [Concomitant]

REACTIONS (1)
  - UTERINE PERFORATION [None]
